FAERS Safety Report 9779030 (Version 1)
Quarter: 2013Q4

REPORT INFORMATION
  Report Type: Spontaneous
  Country: BR (occurrence: BR)
  Receive Date: 20131223
  Receipt Date: 20131223
  Transmission Date: 20140711
  Serious: Yes (Hospitalization, Other)
  Sender: FDA-Public Use
  Company Number: BR-VERTEX PHARMACEUTICALS INC-2013-011954

PATIENT
  Age: 69 Year
  Sex: Female

DRUGS (1)
  1. INCIVO [Suspect]
     Indication: PRODUCT USED FOR UNKNOWN INDICATION
     Route: 065

REACTIONS (4)
  - Pneumonia [Recovered/Resolved]
  - Investigation [Not Recovered/Not Resolved]
  - Anaemia [Recovered/Resolved]
  - Rash [Recovered/Resolved]
